FAERS Safety Report 9358670 (Version 2)
Quarter: 2013Q3

REPORT INFORMATION
  Report Type: Spontaneous
  Country: GB (occurrence: GB)
  Receive Date: 20130620
  Receipt Date: 20130725
  Transmission Date: 20140515
  Serious: Yes (Life-Threatening, Hospitalization, Other)
  Sender: FDA-Public Use
  Company Number: PHFR2013GB003441

PATIENT
  Sex: Female

DRUGS (6)
  1. TEGRETOL RETARD [Suspect]
     Indication: TEMPORAL LOBE EPILEPSY
     Dosage: 1000 MG, (400 MG IN MORNING AND 600 MG IN EVENING)
     Dates: start: 1994
  2. TEGRETOL RETARD [Suspect]
     Dosage: 600 MG, (200 MG IN MORNING AND 400 MG IN EVENING)
     Dates: start: 2000, end: 2001
  3. PREDNISOLONE [Concomitant]
     Dosage: 60 MG, (TAKEN WHEN NEEDED FOR 2 WEEKS)
  4. PREDNISOLONE [Concomitant]
     Dosage: 5 MG, (PER WEEK)
  5. METHOTREXATE [Concomitant]
     Indication: IMMUNE SYSTEM DISORDER
  6. AZATHIOPRINE [Concomitant]
     Indication: IMMUNE SYSTEM DISORDER

REACTIONS (26)
  - Blood potassium increased [Unknown]
  - Blood sodium decreased [Unknown]
  - Fall [Unknown]
  - Autoimmune disorder [Unknown]
  - Connective tissue disorder [Unknown]
  - Cyst [Unknown]
  - Hand deformity [Unknown]
  - Feeling abnormal [Unknown]
  - Feeling cold [Unknown]
  - Influenza like illness [Not Recovered/Not Resolved]
  - Photophobia [Unknown]
  - Eye disorder [Unknown]
  - Ocular hyperaemia [Unknown]
  - Oesophageal spasm [Unknown]
  - Thyroid disorder [Unknown]
  - Renal disorder [Unknown]
  - Scar [Unknown]
  - Skin mass [Not Recovered/Not Resolved]
  - Headache [Unknown]
  - Hypotension [Unknown]
  - Dizziness [Unknown]
  - Agitation [Unknown]
  - Somnolence [Unknown]
  - Platelet count increased [Unknown]
  - Arthralgia [Unknown]
  - Pain [Unknown]
